FAERS Safety Report 9842859 (Version 1)
Quarter: 2013Q4

REPORT INFORMATION
  Report Type: Spontaneous
  Country: US (occurrence: None)
  Receive Date: 20131223
  Receipt Date: 20131223
  Transmission Date: 20140711
  Serious: No
  Sender: FDA-Public Use
  Company Number: 220380LEO

PATIENT
  Age: 62 Year
  Sex: Female

DRUGS (3)
  1. PICATO (0.05%) [Suspect]
     Indication: HEAVY EXPOSURE TO ULTRAVIOLET LIGHT
     Dosage: 1 IN 1 D
     Dates: start: 20130131
  2. BENADRYL (DIPHENHYDRAMINE HYDROCHLORIDE) [Concomitant]
  3. ASPIRIN (ACETYLSALICYLIC ACID) [Concomitant]

REACTIONS (5)
  - Application site paraesthesia [None]
  - Application site pain [None]
  - Application site pain [None]
  - Application site erythema [None]
  - Drug administered at inappropriate site [None]
